FAERS Safety Report 8991347 (Version 1)
Quarter: 2012Q4

REPORT INFORMATION
  Report Type: 
  Country: CN (occurrence: CN)
  Receive Date: 20121230
  Receipt Date: 20121230
  Transmission Date: 20130627
  Serious: Yes (Hospitalization)
  Sender: FDA-Public Use
  Company Number: PHHY2012CN120402

PATIENT
  Age: 69 Year
  Sex: Male
  Weight: 69 kg

DRUGS (1)
  1. VOLTAREN [Suspect]
     Indication: RHEUMATOID ARTHRITIS
     Dosage: 25 mg, TID
     Route: 048
     Dates: start: 20090707, end: 20090711

REACTIONS (3)
  - Gastric ulcer [Recovering/Resolving]
  - Abdominal discomfort [Recovering/Resolving]
  - Upper gastrointestinal haemorrhage [Recovering/Resolving]
